FAERS Safety Report 15977223 (Version 1)
Quarter: 2019Q1

REPORT INFORMATION
  Report Type: Spontaneous
  Country: US (occurrence: US)
  Receive Date: 20190218
  Receipt Date: 20190218
  Transmission Date: 20190418
  Serious: No
  Sender: FDA-Public Use
  Company Number: US-TEVA-2019-US-998289

PATIENT
  Sex: Female

DRUGS (2)
  1. TAMOXIFEN MYLAN [Suspect]
     Active Substance: TAMOXIFEN
     Route: 065
     Dates: start: 201802, end: 201812
  2. TAMOXIFEN CITRATE TABLET ACTAVIS [Suspect]
     Active Substance: TAMOXIFEN CITRATE
     Route: 065
     Dates: start: 2011

REACTIONS (2)
  - Product substitution issue [Unknown]
  - Alopecia [Unknown]
